FAERS Safety Report 13729008 (Version 5)
Quarter: 2025Q1

REPORT INFORMATION
  Report Type: Spontaneous
  Country: US (occurrence: US)
  Receive Date: 20170707
  Receipt Date: 20250103
  Transmission Date: 20250408
  Serious: No
  Sender: PFIZER
  Company Number: US-PFIZER INC-2017295753

PATIENT
  Age: 79 Year
  Sex: Female

DRUGS (3)
  1. AMLODIPINE BESYLATE [Suspect]
     Active Substance: AMLODIPINE BESYLATE
  2. OXALIPLATIN [Suspect]
     Active Substance: OXALIPLATIN
  3. DASATINIB [Suspect]
     Active Substance: DASATINIB

REACTIONS (1)
  - Drug hypersensitivity [Unknown]
